FAERS Safety Report 4816002-7 (Version None)
Quarter: 2005Q4

REPORT INFORMATION
  Report Type: 
  Country: None (occurrence: None)
  Receive Date: 20051026
  Receipt Date: 20051018
  Transmission Date: 20060501
  Serious: Yes (Other)
  Sender: FDA-Public Use
  Company Number: TPA2005A00844

PATIENT
  Age: 66 Year
  Sex: Female
  Weight: 81.6475 kg

DRUGS (5)
  1. ACTOS [Suspect]
     Indication: DIABETES MELLITUS NON-INSULIN-DEPENDENT
     Dosage: 30 MG, 1 IN 1 D, PER ORAL
     Route: 048
     Dates: start: 20031101
  2. LASIX [Concomitant]
  3. INFLAMASE (PREDNISOLONE SODIUM PHOSPHATE) [Concomitant]
  4. ACULAR [Concomitant]
  5. ERYTHRONYCIN ERYTHROMYCIN) (OINTMENT) [Concomitant]

REACTIONS (2)
  - VISUAL ACUITY REDUCED [None]
  - VITREOUS DETACHMENT [None]
